FAERS Safety Report 7758719-0 (Version None)
Quarter: 2011Q3

REPORT INFORMATION
  Report Type: 
  Country: None (occurrence: None)
  Receive Date: 20110919
  Receipt Date: 20100615
  Transmission Date: 20111222
  Serious: No
  Sender: FDA-Public Use
  Company Number: US-BAYER-201026871NA

PATIENT
  Sex: Female

DRUGS (1)
  1. MIRENA [Suspect]
     Indication: CONTRACEPTION
     Dosage: 20 ?G, CONT
     Route: 015

REACTIONS (5)
  - PAIN IN EXTREMITY [None]
  - MEDICAL DEVICE COMPLICATION [None]
  - PAIN [None]
  - UTERINE SPASM [None]
  - SECRETION DISCHARGE [None]
